FAERS Safety Report 9326831 (Version 1)
Quarter: 2013Q2

REPORT INFORMATION
  Report Type: Spontaneous
  Country: FR (occurrence: FR)
  Receive Date: 20130604
  Receipt Date: 20130604
  Transmission Date: 20140414
  Serious: Yes (Hospitalization)
  Sender: FDA-Public Use
  Company Number: FR-LUNDBECK-DKLU1091373

PATIENT
  Age: 31 Year
  Sex: Male

DRUGS (6)
  1. ONFI [Suspect]
     Indication: EPILEPSY
     Route: 048
  2. ZONEGRAN [Suspect]
     Indication: EPILEPSY
     Route: 048
     Dates: start: 201301, end: 201303
  3. ZONEGRAN [Suspect]
     Indication: CONVULSION
  4. TOPIRAMATE [Suspect]
     Indication: EPILEPSY
     Route: 048
  5. CETIRIZINE DIHYDROCHLORIDE [Suspect]
     Indication: EPILEPSY
     Route: 048
  6. KEPPRA [Concomitant]
     Indication: PRODUCT USED FOR UNKNOWN INDICATION
     Dates: end: 201301

REACTIONS (4)
  - Persecutory delusion [Not Recovered/Not Resolved]
  - Hallucination [Not Recovered/Not Resolved]
  - Abnormal behaviour [None]
  - Status epilepticus [None]
